FAERS Safety Report 8227365-7 (Version None)
Quarter: 2012Q1

REPORT INFORMATION
  Report Type: 
  Country: None (occurrence: None)
  Receive Date: 20120322
  Receipt Date: 20120308
  Transmission Date: 20120608
  Serious: Yes (Other)
  Sender: FDA-Public Use
  Company Number: JP-AMGEN-JPNSP2011057538

PATIENT
  Age: 53 Year
  Sex: Female

DRUGS (6)
  1. METHOTREXATE [Concomitant]
     Dosage: 4 MG, 2X/WEEK
     Route: 048
     Dates: start: 20071107, end: 20100303
  2. METHOTREXATE [Concomitant]
     Indication: RHEUMATOID ARTHRITIS
     Dosage: 6 MG, WEEKLY
     Route: 048
     Dates: start: 20100304, end: 20110629
  3. PROGRAF [Concomitant]
     Indication: RHEUMATOID ARTHRITIS
     Dosage: 1 MG, 1X/DAY
     Route: 048
     Dates: start: 20100820
  4. METHOTREXATE [Concomitant]
     Indication: RHEUMATOID ARTHRITIS
     Dosage: 6 MG, WEEKLY
     Route: 048
     Dates: start: 20070919, end: 20071107
  5. ENBREL [Suspect]
     Indication: RHEUMATOID ARTHRITIS
     Dosage: 25 MG, 2 TIMES/WK
     Route: 058
     Dates: start: 20080806
  6. METHOTREXATE [Concomitant]
     Dosage: 8 MG, WEEKLY
     Route: 048
     Dates: start: 20110630

REACTIONS (1)
  - RETINAL DETACHMENT [None]
